FAERS Safety Report 7357778-7 (Version None)
Quarter: 2011Q1

REPORT INFORMATION
  Report Type: 
  Country: None (occurrence: None)
  Receive Date: 20110317
  Receipt Date: 20110308
  Transmission Date: 20110831
  Serious: Yes (Hospitalization, Other)
  Sender: FDA-Public Use
  Company Number: DE-NOVOPROD-316998

PATIENT
  Sex: Male
  Weight: 112 kg

DRUGS (8)
  1. METFORMIN HCL [Concomitant]
     Dosage: UNK
     Route: 048
     Dates: start: 20070801, end: 20090801
  2. ASPIRIN [Concomitant]
     Dosage: UNK
     Route: 048
  3. BRONCHORETARD [Concomitant]
     Dosage: UNK
     Route: 048
     Dates: start: 20090101
  4. VICTOZA [Suspect]
     Indication: TYPE 2 DIABETES MELLITUS
     Dosage: UNK
     Route: 058
     Dates: start: 20090901, end: 20100201
  5. ALLOPURINOL [Concomitant]
     Dosage: UNK
     Route: 048
     Dates: end: 20090101
  6. EXENATIDE [Suspect]
     Indication: TYPE 2 DIABETES MELLITUS
     Dosage: UNK
     Route: 058
     Dates: start: 20070801, end: 20090901
  7. CO-DIOVAN [Concomitant]
     Dosage: UNK
     Route: 048
     Dates: end: 20090301
  8. CARMEN [Concomitant]
     Dosage: UNK
     Route: 048
     Dates: start: 20100101

REACTIONS (1)
  - PANCREATIC CARCINOMA [None]
